FAERS Safety Report 4676435-9 (Version None)
Quarter: 2005Q2

REPORT INFORMATION
  Report Type: 
  Country: None (occurrence: None)
  Receive Date: 20050527
  Receipt Date: 20050223
  Transmission Date: 20051028
  Serious: Yes (Death)
  Sender: FDA-Public Use
  Company Number: US-MERCK-0502USA03491

PATIENT
  Age: 64 Year
  Sex: Male
  Weight: 114 kg

DRUGS (16)
  1. VIOXX [Suspect]
     Indication: GOUT
     Route: 048
     Dates: start: 20001019, end: 20010321
  2. VIOXX [Suspect]
     Route: 048
     Dates: start: 20001019, end: 20010321
  3. VIOXX [Suspect]
     Route: 048
     Dates: start: 20010402, end: 20030217
  4. VIOXX [Suspect]
     Route: 048
     Dates: start: 20010402, end: 20030317
  5. VIOXX [Suspect]
     Indication: RHEUMATOID ARTHRITIS
     Route: 048
     Dates: start: 20001019, end: 20010321
  6. VIOXX [Suspect]
     Route: 048
     Dates: start: 20001019, end: 20010321
  7. VIOXX [Suspect]
     Route: 048
     Dates: start: 20010402, end: 20030217
  8. VIOXX [Suspect]
     Route: 048
     Dates: start: 20010402, end: 20030317
  9. ALLOPURINOL [Concomitant]
     Route: 065
     Dates: start: 20011001, end: 20020101
  10. ALLOPURINOL [Concomitant]
     Route: 065
     Dates: start: 20020101, end: 20020301
  11. ALLOPURINOL [Concomitant]
     Route: 065
     Dates: start: 20020301, end: 20030201
  12. PREDNISONE [Concomitant]
     Route: 065
     Dates: start: 20010301, end: 20010801
  13. PREDNISONE [Concomitant]
     Route: 065
     Dates: start: 20010801, end: 20020101
  14. PREDNISONE [Concomitant]
     Route: 065
     Dates: start: 20020101, end: 20020301
  15. PERCOCET [Concomitant]
     Route: 065
     Dates: start: 20000101, end: 20030101
  16. NAPROXEN [Concomitant]
     Route: 065
     Dates: start: 20000401, end: 20001001

REACTIONS (17)
  - ALANINE AMINOTRANSFERASE INCREASED [None]
  - ASPARTATE AMINOTRANSFERASE INCREASED [None]
  - BLOOD ALKALINE PHOSPHATASE INCREASED [None]
  - BLOOD CHOLESTEROL INCREASED [None]
  - CORONARY ARTERY ATHEROSCLEROSIS [None]
  - CORONARY ARTERY THROMBOSIS [None]
  - DIVERTICULUM [None]
  - DIVERTICULUM INTESTINAL [None]
  - DRUG SCREEN POSITIVE [None]
  - GOUT [None]
  - HYPERTENSIVE HEART DISEASE [None]
  - MYOCARDIAL INFARCTION [None]
  - NODULE [None]
  - PAIN [None]
  - PRESCRIBED OVERDOSE [None]
  - SKIN NODULE [None]
  - SPINAL OSTEOARTHRITIS [None]
